FAERS Safety Report 16123676 (Version 9)
Quarter: 2020Q1

REPORT INFORMATION
  Report Type: Spontaneous
  Country: US (occurrence: US)
  Receive Date: 20190327
  Receipt Date: 20200224
  Transmission Date: 20200409
  Serious: Yes (Other)
  Sender: FDA-Public Use
  Company Number: US-PFIZER INC-2019124523

PATIENT
  Age: 79 Year
  Sex: Female
  Weight: 93 kg

DRUGS (3)
  1. LYRICA [Suspect]
     Active Substance: PREGABALIN
     Dosage: 75 MG, 2X/DAY
     Route: 048
     Dates: start: 2018
  2. LYRICA [Suspect]
     Active Substance: PREGABALIN
     Dosage: UNK, 2X/DAY (75 BY MOUTH TWICE DAILY )
     Route: 048
     Dates: start: 2018
  3. LYRICA [Suspect]
     Active Substance: PREGABALIN
     Indication: NEUROPATHY PERIPHERAL
     Dosage: UNK

REACTIONS (5)
  - Malaise [Unknown]
  - Headache [Unknown]
  - Nasopharyngitis [Recovering/Resolving]
  - Weight increased [Not Recovered/Not Resolved]
  - Panic reaction [Unknown]

NARRATIVE: CASE EVENT DATE: 20190310
